FAERS Safety Report 16216322 (Version 3)
Quarter: 2020Q3

REPORT INFORMATION
  Report Type: Spontaneous
  Country: CA (occurrence: CA)
  Receive Date: 20190419
  Receipt Date: 20200818
  Transmission Date: 20201102
  Serious: Yes (Hospitalization, Other)
  Sender: FDA-Public Use
  Company Number: CA-AUROBINDO-AUR-APL-2019-020489

PATIENT
  Age: 31 Year
  Sex: Female
  Weight: 71 kg

DRUGS (12)
  1. QUETIAPINE FILM?COATED TABLET [Suspect]
     Active Substance: QUETIAPINE
     Indication: SEIZURE
     Dosage: UNK
     Route: 065
  2. REMICADE [Suspect]
     Active Substance: INFLIXIMAB
     Indication: CROHN^S DISEASE
     Dosage: 400 MILLIGRAM,1 EVERY 4 WEEKS
     Route: 042
  3. DIPHENHYDRAMINE. [Suspect]
     Active Substance: DIPHENHYDRAMINE
     Indication: PREMEDICATION
     Dosage: UNK
     Route: 030
  4. LEVETIRACETAM. [Suspect]
     Active Substance: LEVETIRACETAM
     Indication: PRODUCT USED FOR UNKNOWN INDICATION
     Dosage: UNK
     Route: 065
  5. CLONAZEPAM. [Suspect]
     Active Substance: CLONAZEPAM
     Indication: PRODUCT USED FOR UNKNOWN INDICATION
     Dosage: UNK
     Route: 065
  6. KEPPRA [Suspect]
     Active Substance: LEVETIRACETAM
     Indication: SEIZURE
     Dosage: UNK
     Route: 065
  7. HYDROCORTISONE. [Suspect]
     Active Substance: HYDROCORTISONE
     Indication: PREMEDICATION
     Dosage: UNK
     Route: 065
  8. BOTULINUM TOXIN TYPE A [Suspect]
     Active Substance: BOTULINUM TOXIN TYPE A
     Indication: MIGRAINE
     Dosage: UNK, TOTAL
     Route: 030
  9. DIPHENHYDRAMINE. [Suspect]
     Active Substance: DIPHENHYDRAMINE
     Indication: PRODUCT USED FOR UNKNOWN INDICATION
     Dosage: UNK
     Route: 065
  10. REMICADE [Suspect]
     Active Substance: INFLIXIMAB
     Indication: SEIZURE
  11. INFLIXIMAB [Suspect]
     Active Substance: INFLIXIMAB
     Indication: PRODUCT USED FOR UNKNOWN INDICATION
     Dosage: UNK
     Route: 065
  12. BENADRYL [Suspect]
     Active Substance: DIPHENHYDRAMINE HYDROCHLORIDE
     Indication: PREMEDICATION
     Dosage: UNK
     Route: 065

REACTIONS (5)
  - Influenza like illness [Recovered/Resolved]
  - Maternal exposure during pregnancy [Recovered/Resolved]
  - Off label use [Recovered/Resolved]
  - Product use in unapproved indication [Recovered/Resolved]
  - Intentional product use issue [Recovered/Resolved]
